FAERS Safety Report 25942331 (Version 1)
Quarter: 2025Q4

REPORT INFORMATION
  Report Type: Spontaneous
  Country: EU (occurrence: EU)
  Receive Date: 20251021
  Receipt Date: 20251021
  Transmission Date: 20260117
  Serious: Yes (Other)
  Sender: SANDOZ
  Company Number: None

PATIENT
  Age: 17 Year
  Sex: Female

DRUGS (3)
  1. CANNABIS SATIVA SUBSP. INDICA TOP [Suspect]
     Active Substance: CANNABIS SATIVA SUBSP. INDICA TOP
     Indication: Product used for unknown indication
     Dosage: UNK, QD, 1 JOINT AT 9PM
     Route: 055
     Dates: start: 20250329, end: 20250329
  2. CANNABIS SATIVA SUBSP. INDICA TOP [Suspect]
     Active Substance: CANNABIS SATIVA SUBSP. INDICA TOP
     Dosage: UNK, 6 TO 7 JOINTS PER DAY
     Route: 055
  3. ACETAMINOPHEN [Suspect]
     Active Substance: ACETAMINOPHEN
     Indication: Product used for unknown indication
     Dosage: 4 G, QD, 4 G AT 3 PM
     Route: 048
     Dates: start: 20250329, end: 20250329

REACTIONS (6)
  - Toxicity to various agents [Recovered/Resolved]
  - Feeling abnormal [Not Recovered/Not Resolved]
  - Proteinuria [Not Recovered/Not Resolved]
  - Drug abuse [Not Recovered/Not Resolved]
  - Vomiting [Recovered/Resolved]
  - Abdominal pain [Recovered/Resolved]

NARRATIVE: CASE EVENT DATE: 20250329
